FAERS Safety Report 18326186 (Version 7)
Quarter: 2021Q4

REPORT INFORMATION
  Report Type: Report from Study
  Country: AT (occurrence: AT)
  Receive Date: 20200929
  Receipt Date: 20211020
  Transmission Date: 20220303
  Serious: Yes (Hospitalization, Other)
  Sender: FDA-Public Use
  Company Number: AT-ROCHE-2215193

PATIENT
  Sex: Female
  Weight: 80.4 kg

DRUGS (52)
  1. TRASTUZUMAB [Suspect]
     Active Substance: TRASTUZUMAB
     Indication: Breast cancer metastatic
     Dosage: 624 MILLIGRAM, QD, MOST RECENT DOSE PRIOR TO THE EVENTS: 10/AUG/2017
     Route: 042
     Dates: start: 20170224, end: 20170224
  2. TRASTUZUMAB [Suspect]
     Active Substance: TRASTUZUMAB
     Dosage: 624 MILLIGRAM, QD(MOST RECENT DOSE)
     Route: 042
     Dates: end: 20170810
  3. FULVESTRANT [Suspect]
     Active Substance: FULVESTRANT
     Indication: Breast cancer
     Dosage: 500 MG, BIWEEKLY(MOST RECENT DOSE PRIOR TO THE EVENT LYMPH NODE METASTATIS) START DATE: 02-OCT-2017
     Route: 030
     Dates: end: 20171115
  4. FULVESTRANT [Suspect]
     Active Substance: FULVESTRANT
     Indication: Breast cancer metastatic
  5. CAPECITABINE [Suspect]
     Active Substance: CAPECITABINE
     Indication: Breast cancer
     Dosage: 3500 MILLIGRAM, QD(MOST RECENT DOSE PRIOR TO THE EVENT LYMPH NODE METASTATIS)
     Route: 048
     Dates: start: 20191002, end: 20200107
  6. CAPECITABINE [Suspect]
     Active Substance: CAPECITABINE
     Indication: Breast cancer metastatic
  7. VINORELBINE [Suspect]
     Active Substance: VINORELBINE TARTRATE
     Indication: Breast cancer
     Dosage: 45 MILLIGRAM, Q3W
     Route: 042
     Dates: start: 20200422
  8. VINORELBINE [Suspect]
     Active Substance: VINORELBINE TARTRATE
     Indication: Breast cancer metastatic
  9. LAPATINIB [Suspect]
     Active Substance: LAPATINIB
     Indication: Breast cancer
     Dosage: 1250 MILLIGRAM, QD(MOST RECENT DOSE PRIOR TO THE EVENT LYMPH NODE METASTATIS)
     Route: 048
     Dates: start: 20191002, end: 20200107
  10. LAPATINIB [Suspect]
     Active Substance: LAPATINIB
     Indication: Breast cancer metastatic
  11. PERTUZUMAB [Suspect]
     Active Substance: PERTUZUMAB
     Indication: Breast cancer metastatic
     Dosage: 840 MILLIGRAM, QD(MOST RECENT DOSE PRIOR TO THE EVENT LYMPH NODE METASTATIS AXILLA)
     Route: 042
     Dates: start: 20170224, end: 20170224
  12. PERTUZUMAB [Suspect]
     Active Substance: PERTUZUMAB
     Dosage: MOST RECENT DOSE PRIOR TO THE EVENT)
     Route: 042
     Dates: end: 20170317
  13. ADO-TRASTUZUMAB EMTANSINE [Suspect]
     Active Substance: ADO-TRASTUZUMAB EMTANSINE
     Indication: Breast cancer
     Dosage: 270 MILLIGRAM, Q3W
     Route: 042
     Dates: start: 20190306, end: 20190909
  14. ADO-TRASTUZUMAB EMTANSINE [Suspect]
     Active Substance: ADO-TRASTUZUMAB EMTANSINE
     Indication: Breast cancer metastatic
  15. DOCETAXEL [Suspect]
     Active Substance: DOCETAXEL
     Indication: Breast cancer metastatic
     Dosage: 190 MILLIGRAM, Q3W, MOST RECENT DOSE PRIOR TO THE EVENTS: 09/JUN/2017
     Route: 042
     Dates: start: 20170224, end: 20170317
  16. DOCETAXEL [Suspect]
     Active Substance: DOCETAXEL
     Dosage: 190 MILLIGRAM, Q3W(MOST RECENT DOSE PRIOR)
     Route: 042
     Dates: end: 20170609
  17. BLEOMYCIN [Suspect]
     Active Substance: BLEOMYCIN SULFATE
     Indication: Breast cancer metastatic
     Dosage: 26.85 MILLIGRAM, QD, DRUG WAS DISCONTINUED AS PLANNED NUMBER OF CYCLES COMPLETED.
     Route: 042
     Dates: start: 20200519, end: 20200519
  18. BLEOMYCIN [Suspect]
     Active Substance: BLEOMYCIN SULFATE
     Dosage: 1 DOSAGE FORM, QD, DRUG WAS DISCONTINUED AS PLANNED NUMBER OF CYCLES COMPLETED.
     Route: 042
     Dates: start: 20210105, end: 20210105
  19. LEUKICHTAN                         /04749301/ [Concomitant]
     Dosage: UNK
     Dates: start: 20200430, end: 20200515
  20. ZOFRAN [Concomitant]
     Active Substance: ONDANSETRON HYDROCHLORIDE
     Dosage: UNK
     Dates: start: 20200506
  21. DEXAMETHASONE [Concomitant]
     Active Substance: DEXAMETHASONE
     Indication: Brain oedema
     Dosage: UNK
     Dates: start: 20171004, end: 20171006
  22. DEXAMETHASONE [Concomitant]
     Active Substance: DEXAMETHASONE
     Dosage: UNK
     Dates: start: 20171007, end: 20171008
  23. DEXAMETHASONE [Concomitant]
     Active Substance: DEXAMETHASONE
     Dosage: UNK
     Dates: start: 20200422, end: 20200505
  24. OLIVE OIL [Concomitant]
     Active Substance: OLIVE OIL
     Indication: Paronychia
     Dosage: UNK
     Dates: start: 20191002, end: 20200512
  25. KALIORAL                           /00279301/ [Concomitant]
     Dosage: UNK
     Dates: start: 20200427, end: 20200428
  26. FUROSEMIDE [Concomitant]
     Active Substance: FUROSEMIDE
     Dosage: UNK
     Dates: start: 20170810
  27. FUROSEMIDE [Concomitant]
     Active Substance: FUROSEMIDE
     Dosage: UNK(ONGOING, NOT CHECKED)
     Dates: start: 20170810, end: 20171213
  28. EMEND [Concomitant]
     Active Substance: APREPITANT
     Dosage: UNK
     Dates: start: 20200428, end: 20200430
  29. BETAISODONA [Concomitant]
     Active Substance: POVIDONE-IODINE
     Indication: Skin fissures
     Dosage: UNK(ONGOING = NOT CHECKED)
     Dates: start: 20200430, end: 20200515
  30. KCL [Concomitant]
     Active Substance: POTASSIUM CHLORIDE
     Dosage: UNK
     Dates: start: 20170429
  31. OLEOVIT                            /00056001/ [Concomitant]
     Dosage: UNK
     Dates: start: 20170329
  32. EDOXABAN TOSYLATE [Concomitant]
     Active Substance: EDOXABAN TOSYLATE
     Dosage: UNK
     Dates: start: 20191120, end: 20200608
  33. ACETAMINOPHEN [Concomitant]
     Active Substance: ACETAMINOPHEN
     Dosage: UNK
     Dates: start: 20200506
  34. TAZOBACTAM [Concomitant]
     Active Substance: TAZOBACTAM
     Indication: Streptococcal sepsis
     Dosage: UNK
     Dates: start: 20200423, end: 20200504
  35. FENTANYL [Concomitant]
     Active Substance: FENTANYL
     Dosage: UNK
     Dates: start: 20200515
  36. PANTOPRAZOLE [Concomitant]
     Active Substance: PANTOPRAZOLE
     Dosage: UNK
     Dates: start: 20170722, end: 20180327
  37. PANTOPRAZOLE [Concomitant]
     Active Substance: PANTOPRAZOLE
     Dosage: UNK
     Dates: start: 20200506, end: 20200519
  38. LOVENOX [Concomitant]
     Active Substance: ENOXAPARIN SODIUM
     Dosage: UNK
     Dates: start: 20170224, end: 20171130
  39. PREGABALIN [Concomitant]
     Active Substance: PREGABALIN
     Dosage: UNK
     Dates: start: 20190821
  40. LEVOFLOXACIN [Concomitant]
     Active Substance: LEVOFLOXACIN
     Dosage: UNK
     Dates: start: 20200506, end: 20200512
  41. DEXAMETHASONE [Concomitant]
     Active Substance: DEXAMETHASONE
     Indication: Brain oedema
     Dosage: ONGOING = NOT CHECKED
     Dates: start: 20171007, end: 20171008
  42. DEXAMETHASONE [Concomitant]
     Active Substance: DEXAMETHASONE
     Dosage: UNK
     Dates: start: 20171004, end: 20171006
  43. DEXAMETHASONE [Concomitant]
     Active Substance: DEXAMETHASONE
     Dosage: UNK
     Dates: start: 20200422, end: 20200505
  44. EUTHYROX [Concomitant]
     Active Substance: LEVOTHYROXINE SODIUM
     Dosage: UNK
     Dates: start: 20170303
  45. NOVALGIN (METAMIZOLE SODIUM) [Concomitant]
     Active Substance: METAMIZOLE SODIUM
     Dosage: UNK
     Dates: start: 20170329, end: 20180807
  46. XGEVA [Concomitant]
     Active Substance: DENOSUMAB
     Dosage: UNK
     Dates: start: 20170202
  47. NERIFORTE [Concomitant]
     Indication: Skin fissures
     Dosage: UNK
     Dates: start: 20200430, end: 20200515
  48. METOCLOPRAMIDE HYDROCHLORIDE [Concomitant]
     Active Substance: METOCLOPRAMIDE HYDROCHLORIDE
     Dosage: UNK
     Dates: start: 20200506
  49. VITAMINS WITH MINERALS [Concomitant]
     Active Substance: MINERALS\VITAMINS
     Dosage: UNK(ONGOING, CHECKED)
     Dates: start: 20170203
  50. OLEOVIT                            /01371001/ [Concomitant]
     Dosage: UNK
     Dates: start: 20170329
  51. OLEOVIT                            /00056001/ [Concomitant]
     Dosage: UNK
     Dates: start: 20170329
  52. SILICON [Concomitant]
     Active Substance: SILICON
     Indication: Skin fissures
     Dosage: ONGOING = NOT CHECKED
     Dates: start: 20200521, end: 20200602

REACTIONS (11)
  - Metastases to lymph nodes [Not Recovered/Not Resolved]
  - Metastases to central nervous system [Not Recovered/Not Resolved]
  - Vascular device infection [Recovered/Resolved]
  - Pseudomonal sepsis [Recovered/Resolved]
  - Streptococcal sepsis [Recovered/Resolved]
  - Brain oedema [Not Recovered/Not Resolved]
  - Nausea [Recovered/Resolved]
  - Fatigue [Not Recovered/Not Resolved]
  - Vomiting [Recovered/Resolved]
  - Back pain [Recovered/Resolved]
  - Pleural effusion [Recovered/Resolved]

NARRATIVE: CASE EVENT DATE: 20170921
